FAERS Safety Report 4863383-4 (Version None)
Quarter: 2005Q4

REPORT INFORMATION
  Report Type: 
  Country: None (occurrence: None)
  Receive Date: 20051222
  Receipt Date: 20041110
  Transmission Date: 20060501
  Serious: No
  Sender: FDA-Public Use
  Company Number: US-GLAXOSMITHKLINE-A0533421A

PATIENT
  Age: 72 Year
  Sex: Female

DRUGS (3)
  1. FLONASE [Suspect]
     Dosage: 2SPR PER DAY
     Route: 045
     Dates: end: 20040901
  2. LORATADINE [Concomitant]
  3. HYDROXYZINE [Concomitant]

REACTIONS (1)
  - EPISTAXIS [None]
